FAERS Safety Report 8920053 (Version 1)
Quarter: 2012Q4

REPORT INFORMATION
  Report Type: 
  Country: IE (occurrence: IE)
  Receive Date: 20121121
  Receipt Date: 20121121
  Transmission Date: 20130627
  Serious: Yes (Hospitalization)
  Sender: FDA-Public Use
  Company Number: IE-MERCK-1211IRL007065

PATIENT
  Age: 86 Year
  Sex: Female

DRUGS (1)
  1. SINEMET CR [Suspect]
     Dosage: UNK, tid
     Route: 048

REACTIONS (2)
  - Joint dislocation [Unknown]
  - Wrong technique in drug usage process [Unknown]
